FAERS Safety Report 24465837 (Version 1)
Quarter: 2024Q4

REPORT INFORMATION
  Report Type: Report from Study
  Country: US (occurrence: US)
  Receive Date: 20241018
  Receipt Date: 20241018
  Transmission Date: 20250115
  Serious: No
  Sender: ROCHE
  Company Number: US-ROCHE-3538149

PATIENT
  Age: 39 Year
  Sex: Female

DRUGS (14)
  1. XOLAIR [Suspect]
     Active Substance: OMALIZUMAB
     Indication: Idiopathic urticaria
     Dosage: MOST RECENT INJECTION: 28/MAR/2024.
     Route: 058
  2. XOLAIR [Suspect]
     Active Substance: OMALIZUMAB
  3. DIPHENHYDRAMINE [Concomitant]
     Active Substance: DIPHENHYDRAMINE
  4. FAMOTIDINE [Concomitant]
     Active Substance: FAMOTIDINE
  5. FEXOFENADINE [Concomitant]
     Active Substance: FEXOFENADINE HYDROCHLORIDE
  6. KETOTIFEN [Concomitant]
     Active Substance: KETOTIFEN
  7. IMATINIB [Concomitant]
     Active Substance: IMATINIB
  8. CIMETIDINE [Concomitant]
     Active Substance: CIMETIDINE
  9. CROMOLYN [Concomitant]
     Active Substance: CROMOLYN
  10. EPIPEN [Concomitant]
     Active Substance: EPINEPHRINE
  11. PREDNISONE [Concomitant]
     Active Substance: PREDNISONE
  12. XANAX [Concomitant]
     Active Substance: ALPRAZOLAM
  13. CLARITIN [Concomitant]
     Active Substance: LORATADINE
  14. DUPIXENT [Concomitant]
     Active Substance: DUPILUMAB

REACTIONS (11)
  - Insomnia [Unknown]
  - Tachycardia paroxysmal [Unknown]
  - Syncope [Unknown]
  - Sneezing [Unknown]
  - Gastrooesophageal reflux disease [Unknown]
  - Dermatitis atopic [Unknown]
  - Fatigue [Unknown]
  - Pruritus [Unknown]
  - Rhinitis allergic [Unknown]
  - Mast cell activation syndrome [Unknown]
  - Dyspnoea [Unknown]
